FAERS Safety Report 10530126 (Version 2)
Quarter: 2014Q4

REPORT INFORMATION
  Report Type: Report from Study
  Country: JP (occurrence: JP)
  Receive Date: 20141021
  Receipt Date: 20141203
  Transmission Date: 20150528
  Serious: Yes (Other)
  Sender: FDA-Public Use
  Company Number: PHHY2014JP134348

PATIENT
  Age: 66 Year
  Sex: Female

DRUGS (10)
  1. AMN107 [Suspect]
     Active Substance: NILOTINIB
     Indication: CHRONIC MYELOID LEUKAEMIA
     Dosage: 600 MG, DAILY IN 2 DIVIDED DOSES
     Route: 048
     Dates: start: 20110809, end: 20110829
  2. AMLODIN [Concomitant]
     Active Substance: AMLODIPINE BESYLATE
     Indication: CHRONIC MYELOID LEUKAEMIA
     Dosage: 5 MG, UNK
     Route: 048
     Dates: end: 20120126
  3. BAKTAR [Concomitant]
     Active Substance: SULFAMETHOXAZOLE\TRIMETHOPRIM
     Indication: PROPHYLAXIS
     Dosage: 1 DF, UNK
     Route: 048
     Dates: end: 20120126
  4. ALFAROL [Concomitant]
     Active Substance: ALFACALCIDOL
     Indication: CHRONIC MYELOID LEUKAEMIA
     Dosage: 1 UG, UNK
     Route: 048
     Dates: end: 20120126
  5. RENIVACE [Concomitant]
     Active Substance: ENALAPRIL
     Indication: CHRONIC MYELOID LEUKAEMIA
     Dosage: 5 MG, UNK
     Route: 048
     Dates: end: 20120126
  6. GASTER [Concomitant]
     Active Substance: FAMOTIDINE
     Indication: CHRONIC MYELOID LEUKAEMIA
     Dosage: 10 MG, UNK
     Route: 048
     Dates: end: 20120126
  7. AMN107 [Suspect]
     Active Substance: NILOTINIB
     Dosage: 600 MG, DAILY IN 2 DIVIDED DOSES
     Route: 048
     Dates: start: 20120106, end: 20120126
  8. AMN107 [Suspect]
     Active Substance: NILOTINIB
     Dosage: 300 MG, DAILY IN 2 DIVIDED DOSES
     Route: 048
     Dates: start: 20111018, end: 20120105
  9. PREDONINE [Concomitant]
     Active Substance: PREDNISOLONE\PREDNISOLONE ACETATE\PREDNISOLONE SODIUM SUCCINATE
     Indication: PROPHYLAXIS
     Dosage: 10 MG,
     Route: 048
     Dates: end: 20120126
  10. AMOBAN [Concomitant]
     Active Substance: ZOPICLONE
     Indication: CHRONIC MYELOID LEUKAEMIA
     Dosage: 10 MG, UNK
     Route: 048
     Dates: end: 20120126

REACTIONS (1)
  - Blood glucose increased [Recovered/Resolved]

NARRATIVE: CASE EVENT DATE: 20111114
